FAERS Safety Report 8123510-2 (Version None)
Quarter: 2012Q1

REPORT INFORMATION
  Report Type: 
  Country: None (occurrence: None)
  Receive Date: 20120208
  Receipt Date: 20120131
  Transmission Date: 20120608
  Serious: Yes (Other)
  Sender: FDA-Public Use
  Company Number: PHHY2012BR009286

PATIENT
  Age: 64 Year
  Sex: Female

DRUGS (3)
  1. BECLOMETHASONE DIPROPIONATE [Suspect]
     Dosage: 1 DF, QD
  2. PREDNISONE [Concomitant]
     Dosage: 1 DF, QD
     Route: 048
  3. FORADIL [Suspect]
     Dosage: 1 DF, QD

REACTIONS (8)
  - BRONCHITIS [None]
  - HYPERTENSION [None]
  - BLOOD GLUCOSE INCREASED [None]
  - DIABETES MELLITUS [None]
  - MALAISE [None]
  - DYSPNOEA [None]
  - BLOOD PRESSURE INCREASED [None]
  - DRUG DEPENDENCE [None]
